FAERS Safety Report 4526572-4 (Version None)
Quarter: 2004Q4

REPORT INFORMATION
  Report Type: 
  Country: None (occurrence: None)
  Receive Date: 20041214
  Receipt Date: 20041203
  Transmission Date: 20050328
  Serious: Yes (Disabling)
  Sender: FDA-Public Use
  Company Number: JP-JNJFOC-20041200762

PATIENT
  Age: 63 Year
  Sex: Male

DRUGS (1)
  1. TAVANIC [Suspect]
     Indication: PROPHYLAXIS
     Route: 049
     Dates: start: 20040927

REACTIONS (2)
  - DIFFICULTY IN WALKING [None]
  - FASCIITIS [None]
